FAERS Safety Report 25975390 (Version 1)
Quarter: 2025Q4

REPORT INFORMATION
  Report Type: Spontaneous
  Country: EU (occurrence: EU)
  Receive Date: 20251029
  Receipt Date: 20251029
  Transmission Date: 20260117
  Serious: Yes (Hospitalization)
  Sender: JOHNSON AND JOHNSON
  Company Number: EU-JNJFOC-20251032674

PATIENT
  Age: 81 Year
  Sex: Female

DRUGS (5)
  1. HALDOL DECANOATE [Suspect]
     Active Substance: HALOPERIDOL DECANOATE
     Indication: Behaviour disorder
     Route: 030
     Dates: start: 20250829, end: 20250915
  2. HALDOL [Suspect]
     Active Substance: HALOPERIDOL
     Indication: Behaviour disorder
     Dates: start: 20250829, end: 20250915
  3. RABEPRAZOLE SODIUM [Concomitant]
     Active Substance: RABEPRAZOLE SODIUM
     Indication: Gastritis prophylaxis
  4. OXAZEPAM [Concomitant]
     Active Substance: OXAZEPAM
     Indication: Behaviour disorder
  5. KARDEGIC [Concomitant]
     Active Substance: ASPIRIN DL-LYSINE
     Indication: Cardiovascular event prophylaxis

REACTIONS (3)
  - Product administration error [Recovered/Resolved]
  - Abnormal behaviour [Recovered/Resolved]
  - Agitation [Recovered/Resolved]

NARRATIVE: CASE EVENT DATE: 20250829
